FAERS Safety Report 15350208 (Version 1)
Quarter: 2018Q3

REPORT INFORMATION
  Report Type: Spontaneous
  Country: US (occurrence: US)
  Receive Date: 20180905
  Receipt Date: 20180905
  Transmission Date: 20181010
  Serious: Yes (Hospitalization, Other)
  Sender: FDA-Public Use
  Company Number: US-ASTELLAS-2018US025137

PATIENT
  Age: 81 Year
  Sex: Male

DRUGS (1)
  1. XTANDI [Suspect]
     Active Substance: ENZALUTAMIDE
     Indication: PROSTATE CANCER
     Route: 048
     Dates: start: 201802

REACTIONS (6)
  - Stoma site extravasation [Not Recovered/Not Resolved]
  - Candida infection [Not Recovered/Not Resolved]
  - Urinary tract infection [Not Recovered/Not Resolved]
  - Urinary tract infection [Not Recovered/Not Resolved]
  - Gastrostomy tube site complication [Not Recovered/Not Resolved]
  - Stoma complication [Not Recovered/Not Resolved]

NARRATIVE: CASE EVENT DATE: 201805
